FAERS Safety Report 12774630 (Version 13)
Quarter: 2017Q4

REPORT INFORMATION
  Report Type: Report from Study
  Country: US (occurrence: US)
  Receive Date: 20160923
  Receipt Date: 20171130
  Transmission Date: 20180320
  Serious: Yes (Life-Threatening, Hospitalization, Other)
  Sender: FDA-Public Use
  Company Number: PHHY2016US126962

PATIENT
  Age: 12 Year
  Sex: Female
  Weight: 53.3 kg

DRUGS (30)
  1. SANDIMMUN NEORAL [Suspect]
     Active Substance: CYCLOSPORINE
     Dosage: 50 MG, UNK
     Route: 065
     Dates: start: 20160815
  2. GENGRAF [Suspect]
     Active Substance: CYCLOSPORINE
     Indication: STILL^S DISEASE
     Dosage: 70 MG, QD
     Route: 065
     Dates: start: 201311, end: 201504
  3. GENGRAF [Suspect]
     Active Substance: CYCLOSPORINE
     Dosage: UNK
     Route: 065
     Dates: start: 20150815
  4. GENGRAF [Suspect]
     Active Substance: CYCLOSPORINE
     Dosage: 100 MG, QD
     Route: 065
     Dates: start: 20150924, end: 201603
  5. KINERET [Suspect]
     Active Substance: ANAKINRA
     Indication: JUVENILE IDIOPATHIC ARTHRITIS
     Dosage: 20 MG, UNK
     Route: 065
     Dates: start: 20110919, end: 20130527
  6. PROGRAF [Concomitant]
     Active Substance: TACROLIMUS\TACROLIMUS ANHYDROUS
     Indication: STILL^S DISEASE
     Dosage: 1.6 MG, QD
     Route: 048
     Dates: start: 201504, end: 201507
  7. CALCIUM [Concomitant]
     Active Substance: CALCIUM
     Dosage: 1200 MG, QD
     Route: 065
     Dates: start: 20161020
  8. FLUCONAZOLE. [Concomitant]
     Active Substance: FLUCONAZOLE
     Indication: CANDIDA INFECTION
     Dosage: 200 MG, QD
     Route: 065
     Dates: start: 20160804
  9. LORATADINE. [Concomitant]
     Active Substance: LORATADINE
     Indication: HYPERSENSITIVITY
     Dosage: 10 MG, QD
     Route: 065
     Dates: start: 2011
  10. VYVANSE [Concomitant]
     Active Substance: LISDEXAMFETAMINE DIMESYLATE
     Indication: ATTENTION DEFICIT/HYPERACTIVITY DISORDER
     Dosage: 40 MG, QD
     Route: 065
     Dates: start: 2011
  11. SANDIMMUN NEORAL [Suspect]
     Active Substance: CYCLOSPORINE
     Dosage: UNK
     Route: 065
     Dates: start: 20160802
  12. LORATADINE. [Concomitant]
     Active Substance: LORATADINE
     Indication: ANAEMIA
     Dosage: 10 MG, QD
     Route: 065
     Dates: start: 20150918
  13. ARCALYST [Suspect]
     Active Substance: RILONACEPT
     Indication: HISTIOCYTOSIS HAEMATOPHAGIC
     Dosage: 110 MG, QD
     Route: 065
     Dates: start: 20160626
  14. SANDIMMUN NEORAL [Suspect]
     Active Substance: CYCLOSPORINE
     Indication: STAPHYLOCOCCAL INFECTION
     Dosage: UNK
     Route: 065
     Dates: start: 20150815
  15. GENGRAF [Suspect]
     Active Substance: CYCLOSPORINE
     Dosage: UNK
     Route: 065
     Dates: start: 20160527
  16. ARCALYST [Suspect]
     Active Substance: RILONACEPT
     Dosage: UNK
     Route: 065
     Dates: start: 20160715
  17. KINERET [Suspect]
     Active Substance: ANAKINRA
     Indication: HISTIOCYTOSIS HAEMATOPHAGIC
     Dosage: 100 MG, UNK
     Route: 065
     Dates: start: 20151013, end: 20160625
  18. METHYLPREDNISOLONE. [Suspect]
     Active Substance: METHYLPREDNISOLONE
     Indication: STAPHYLOCOCCAL INFECTION
     Dosage: UNK
     Route: 065
     Dates: start: 20160815
  19. VYVANSE [Concomitant]
     Active Substance: LISDEXAMFETAMINE DIMESYLATE
     Dosage: 40 MG, QD
     Route: 065
     Dates: start: 20140812
  20. ILARIS [Suspect]
     Active Substance: CANAKINUMAB
     Indication: STILL^S DISEASE
     Dosage: 180 MG, UNK
     Route: 058
     Dates: start: 20130531, end: 201506
  21. SANDIMMUN NEORAL [Suspect]
     Active Substance: CYCLOSPORINE
     Dosage: UNK
     Route: 065
     Dates: start: 20160527
  22. SANDIMMUN NEORAL [Suspect]
     Active Substance: CYCLOSPORINE
     Dosage: 100 MG, QD
     Route: 065
     Dates: start: 20150924, end: 201603
  23. GENGRAF [Suspect]
     Active Substance: CYCLOSPORINE
     Dosage: UNK
     Route: 065
     Dates: start: 20160802
  24. ARCALYST [Suspect]
     Active Substance: RILONACEPT
     Dosage: UNK
     Route: 065
     Dates: start: 20160801
  25. CALCIUM [Concomitant]
     Active Substance: CALCIUM
     Indication: OSTEOPENIA
     Dosage: 1200 MG, QD
     Route: 065
     Dates: start: 2011
  26. LISINOPRIL. [Concomitant]
     Active Substance: LISINOPRIL
     Indication: HYPERTENSION
     Dosage: 10 MG, QD
     Route: 065
     Dates: start: 20160818
  27. FERROUS SULFATE. [Concomitant]
     Active Substance: FERROUS SULFATE
     Indication: ANAEMIA
     Dosage: 325 MG, BID
     Route: 065
     Dates: start: 20151217
  28. KINERET [Suspect]
     Active Substance: ANAKINRA
     Dosage: UNK
     Route: 065
     Dates: start: 20160529
  29. SANDIMMUN NEORAL [Suspect]
     Active Substance: CYCLOSPORINE
     Indication: STILL^S DISEASE
     Dosage: 70 MG, UNK
     Route: 065
     Dates: start: 201311, end: 201504
  30. NORDITROPIN [Concomitant]
     Active Substance: SOMATROPIN
     Indication: PRODUCT USED FOR UNKNOWN INDICATION
     Dosage: 1.4 MG, QD
     Route: 065
     Dates: start: 20140707, end: 20170815

REACTIONS (12)
  - Gastritis haemorrhagic [Recovered/Resolved]
  - Staphylococcal sepsis [Recovered/Resolved]
  - Oesophageal disorder [Unknown]
  - Duodenal ulcer [Unknown]
  - Oedema peripheral [Unknown]
  - Transaminases increased [Unknown]
  - Fatigue [Unknown]
  - Histiocytosis haematophagic [Recovered/Resolved]
  - Thrombocytopenia [Unknown]
  - Back pain [Unknown]
  - Skin disorder [Unknown]
  - Anaemia [Recovering/Resolving]

NARRATIVE: CASE EVENT DATE: 20160531
